FAERS Safety Report 7370382-X (Version None)
Quarter: 2011Q1

REPORT INFORMATION
  Report Type: 
  Country: None (occurrence: None)
  Receive Date: 20110323
  Receipt Date: 20110318
  Transmission Date: 20110831
  Serious: Yes (Hospitalization)
  Sender: FDA-Public Use
  Company Number: US-B.I. PHARMACEUTICALS,INC./RIDGEFIELD-2011-BP-04978BP

PATIENT
  Age: 87 Year
  Sex: Male
  Weight: 95.25 kg

DRUGS (9)
  1. PRADAXA [Suspect]
     Indication: ATRIAL FIBRILLATION
     Dosage: 300 MG
     Dates: start: 20101208, end: 20110208
  2. PRADAXA [Suspect]
     Indication: PULMONARY ARTERIAL HYPERTENSION
  3. EPLERENONE [Concomitant]
  4. TORSEMIDE [Concomitant]
     Dosage: 20 MG
  5. COREG [Concomitant]
  6. VITAMIN D [Concomitant]
  7. VIAGRA [Concomitant]
     Dosage: 75 MG
  8. ALLOPURINOL [Concomitant]
     Dosage: 300 MG
  9. DIOVAN [Concomitant]
     Dosage: 160 MG

REACTIONS (6)
  - DYSPNOEA [None]
  - GASTRITIS EROSIVE [None]
  - GASTROINTESTINAL HAEMORRHAGE [None]
  - HAEMOGLOBIN INCREASED [None]
  - HAEMATEMESIS [None]
  - ANAEMIA [None]
